FAERS Safety Report 4946529-9 (Version None)
Quarter: 2006Q1

REPORT INFORMATION
  Report Type: 
  Country: None (occurrence: None)
  Receive Date: 20060313
  Receipt Date: 20060227
  Transmission Date: 20060701
  Serious: Yes (Hospitalization)
  Sender: FDA-Public Use
  Company Number: 430013M06USA

PATIENT
  Age: 81 Year
  Sex: Male
  Weight: 72.6 kg

DRUGS (12)
  1. NOVANTRONE [Suspect]
     Indication: ACUTE MYELOID LEUKAEMIA
     Dates: start: 20060101
  2. CEP-701 (INVESTIGATIONAL DRUG) [Suspect]
     Indication: ACUTE MYELOID LEUKAEMIA
     Dosage: 80 MG, 2 IN 1 DAYS, ORAL
     Route: 048
     Dates: start: 20060123, end: 20060125
  3. ETOPOSIDE [Suspect]
     Dates: start: 20060101
  4. CYTARABINE [Suspect]
     Dates: start: 20060101
  5. ACYCLOVIR [Concomitant]
  6. PRED FORTE [Concomitant]
  7. ALLOPURINOL [Concomitant]
  8. BIOTENE (GLUCOSE OXIDASE) [Concomitant]
  9. ATIVAN [Concomitant]
  10. LEXAPRO [Concomitant]
  11. AMBIEN [Concomitant]
  12. PROTONIX [Concomitant]

REACTIONS (4)
  - ANOREXIA [None]
  - FATIGUE [None]
  - MUCOSAL INFLAMMATION [None]
  - PANCYTOPENIA [None]
